FAERS Safety Report 21588357 (Version 1)
Quarter: 2022Q4

REPORT INFORMATION
  Report Type: Report from Study
  Country: CA (occurrence: CA)
  Receive Date: 20221114
  Receipt Date: 20221114
  Transmission Date: 20230113
  Serious: Yes (Other)
  Sender: FDA-Public Use
  Company Number: CA-JNJFOC-20221120837

PATIENT
  Age: 17 Year
  Sex: Male
  Weight: 110 kg

DRUGS (1)
  1. REMICADE [Suspect]
     Active Substance: INFLIXIMAB
     Indication: Colitis ulcerative
     Dosage: ON 08-NOV-2022, PATIENT RECEIVED 2ND INFLIXIMAB INFUSION AT 557.5 MG AND PARTIAL MAYO COMPLETED.
     Route: 042
     Dates: start: 20221025

REACTIONS (3)
  - Haematochezia [Recovering/Resolving]
  - General physical health deterioration [Unknown]
  - Frequent bowel movements [Recovering/Resolving]

NARRATIVE: CASE EVENT DATE: 20221107
